FAERS Safety Report 6213525-3 (Version None)
Quarter: 2009Q2

REPORT INFORMATION
  Report Type: 
  Country: None (occurrence: None)
  Receive Date: 20090601
  Receipt Date: 20090522
  Transmission Date: 20091009
  Serious: Yes (Hospitalization)
  Sender: FDA-Public Use
  Company Number: CFNT-368

PATIENT
  Age: 40 Year
  Sex: Female

DRUGS (1)
  1. SPECTRACEF [Suspect]
     Indication: PHARYNGITIS
     Dosage: 200 MG B.I.D. ORALLY
     Route: 048

REACTIONS (5)
  - ABDOMINAL PAIN [None]
  - DIARRHOEA [None]
  - ENTEROCOLITIS HAEMORRHAGIC [None]
  - HAEMATOCHEZIA [None]
  - HAEMATOCRIT DECREASED [None]
